FAERS Safety Report 6080073-3 (Version None)
Quarter: 2009Q1

REPORT INFORMATION
  Report Type: 
  Country: None (occurrence: None)
  Receive Date: 20090217
  Receipt Date: 20090205
  Transmission Date: 20090719
  Serious: Yes (Hospitalization)
  Sender: FDA-Public Use
  Company Number: JP-PFIZER INC-2008074306

PATIENT

DRUGS (3)
  1. UNASYN [Suspect]
     Indication: INFECTION
     Dosage: 500 MG, 3X/DAY
     Route: 042
     Dates: start: 20080829, end: 20080831
  2. MAGNES CHLORIDE/MALTOSE/POTAS CHLORIDE/POTAS PHOS MONOBAS/SOD ACET/SOD [Suspect]
     Route: 042
  3. SOLITA-T 3G [Concomitant]
     Route: 042

REACTIONS (2)
  - INJECTION SITE EXTRAVASATION [None]
  - SKIN ULCER [None]
